FAERS Safety Report 11241428 (Version 3)
Quarter: 2015Q4

REPORT INFORMATION
  Report Type: Spontaneous
  Country: US (occurrence: US)
  Receive Date: 20150706
  Receipt Date: 20151013
  Transmission Date: 20160304
  Serious: Yes (Other)
  Sender: FDA-Public Use
  Company Number: US-BAYER-2015-370535

PATIENT
  Sex: Female

DRUGS (2)
  1. MIRENA [Suspect]
     Active Substance: LEVONORGESTREL
     Indication: CONTRACEPTION
     Dosage: UNK
     Route: 015
     Dates: start: 2015, end: 2015
  2. MIRENA [Suspect]
     Active Substance: LEVONORGESTREL
     Indication: CONTRACEPTION
     Dosage: UNK
     Route: 015
     Dates: start: 20150521, end: 201506

REACTIONS (7)
  - Depressed mood [Unknown]
  - Device difficult to use [Unknown]
  - Infection [Not Recovered/Not Resolved]
  - Uterine perforation [Unknown]
  - Alopecia [Not Recovered/Not Resolved]
  - Device breakage [Unknown]
  - Device intolerance [Unknown]

NARRATIVE: CASE EVENT DATE: 20150521
